FAERS Safety Report 10011718 (Version 3)
Quarter: 2014Q2

REPORT INFORMATION
  Report Type: Spontaneous
  Country: JP (occurrence: JP)
  Receive Date: 20140314
  Receipt Date: 20140415
  Transmission Date: 20141212
  Serious: Yes (Hospitalization, Other)
  Sender: FDA-Public Use
  Company Number: JP-PFIZER INC-2014070433

PATIENT
  Age: 65 Year
  Sex: Male
  Weight: 59.8 kg

DRUGS (1)
  1. INLYTA [Suspect]
     Dosage: 4 MG, 2X/DAY
     Route: 048
     Dates: start: 20130928, end: 20140305

REACTIONS (1)
  - Cerebral infarction [Not Recovered/Not Resolved]
